FAERS Safety Report 11076750 (Version 1)
Quarter: 2015Q2

REPORT INFORMATION
  Report Type: Spontaneous
  Country: EG (occurrence: EG)
  Receive Date: 20150429
  Receipt Date: 20150429
  Transmission Date: 20150821
  Serious: Yes (Death, Hospitalization, Other)
  Sender: FDA-Public Use
  Company Number: EG-NOVOPROD-446682

PATIENT
  Age: 50 Year
  Sex: Female
  Weight: 85 kg

DRUGS (12)
  1. MIXTARD HUMAN 70/30 [Suspect]
     Active Substance: INSULIN HUMAN
     Dosage: 25 U, QD (15 UNITS MORNING AND 10 UNITS AT NIGHT)
     Route: 058
     Dates: end: 201411
  2. FOLIC ACID. [Concomitant]
     Active Substance: FOLIC ACID
     Dosage: QOD
     Route: 048
  3. CALCIMATE [Concomitant]
     Dosage: TID
     Route: 048
     Dates: start: 20140429, end: 20150402
  4. PANTOPRAZOLE [Concomitant]
     Active Substance: PANTOPRAZOLE SODIUM
     Dosage: QD
     Route: 048
     Dates: start: 20140429, end: 20140529
  5. LASIX [Concomitant]
     Active Substance: FUROSEMIDE
     Dosage: TID
     Route: 048
     Dates: start: 201405, end: 201412
  6. FERROSAN [Concomitant]
     Dosage: ONE AMPOULE EVERY 2 WEEKS
     Dates: start: 201502, end: 201503
  7. MIXTARD HUMAN 70/30 [Suspect]
     Active Substance: INSULIN HUMAN
     Indication: DIABETES MELLITUS
     Dosage: 50 U, QD (30 U MORNING AND 20 U NIGHT
     Route: 058
     Dates: start: 1996
  8. ZANTAC [Concomitant]
     Active Substance: RANITIDINE HYDROCHLORIDE
     Dosage: QD
     Route: 048
     Dates: start: 20140429, end: 20140529
  9. LASIX [Concomitant]
     Active Substance: FUROSEMIDE
     Dosage: INJECTION
     Dates: start: 201404, end: 201405
  10. MIXTARD 30 HM PENFILL [Suspect]
     Active Substance: INSULIN HUMAN
     Indication: DIABETES MELLITUS
     Dosage: 25 U, QD (15 U AT MORNING AND 10 U AT NIGHT)
     Route: 058
     Dates: start: 201411, end: 20150402
  11. MIXTARD HUMAN 70/30 [Suspect]
     Active Substance: INSULIN HUMAN
     Dosage: 15 U, QD (10 UNITS MORNING AND 5 UNITS AT NIGHT)
     Route: 058
     Dates: start: 201404, end: 20140429
  12. ALKAPRESS [Concomitant]
     Dosage: QD
     Route: 048
     Dates: start: 2013, end: 20150402

REACTIONS (2)
  - Renal failure [Fatal]
  - Hyperglycaemia [Unknown]

NARRATIVE: CASE EVENT DATE: 2014
